FAERS Safety Report 13883027 (Version 2)
Quarter: 2017Q4

REPORT INFORMATION
  Report Type: Spontaneous
  Country: JP (occurrence: JP)
  Receive Date: 20170818
  Receipt Date: 20171103
  Transmission Date: 20180320
  Serious: Yes (Hospitalization)
  Sender: FDA-Public Use
  Company Number: JP-BAYER-2017-140541

PATIENT
  Age: 54 Year
  Sex: Female
  Weight: 57.2 kg

DRUGS (8)
  1. STIVARGA [Suspect]
     Active Substance: REGORAFENIB
     Indication: COLON CANCER RECURRENT
     Dosage: DAILY DOSE 3DF
     Route: 048
     Dates: start: 20170627, end: 20170703
  2. CANDESARTAN. [Concomitant]
     Active Substance: CANDESARTAN
     Dosage: DAILY DOSE 8MG
     Route: 048
  3. STIVARGA [Suspect]
     Active Substance: REGORAFENIB
     Indication: COLON CANCER RECURRENT
     Dosage: DAILY DOSE 2DF
     Dates: start: 20170704, end: 20170717
  4. CELECOXIB. [Concomitant]
     Active Substance: CELECOXIB
     Indication: COLON CANCER RECURRENT
     Dosage: DAILY DOSE 200MG
     Route: 048
  5. FUROSEMIDE. [Concomitant]
     Active Substance: FUROSEMIDE
     Indication: COLON CANCER RECURRENT
     Dosage: DAILY DOSE 20MG
     Route: 048
  6. HEPARINOID [Concomitant]
     Active Substance: CHONDROITIN SULFATE (BOVINE)
     Indication: DRUG TOXICITY PROPHYLAXIS
     Dosage: APPROPRIATE AMOUNT
     Route: 003
     Dates: start: 20170704, end: 20170829
  7. AMLODIPINE [Concomitant]
     Active Substance: AMLODIPINE BESYLATE
     Dosage: DAILY DOSE 5MG
     Route: 048
  8. LOCOID [Concomitant]
     Active Substance: HYDROCORTISONE BUTYRATE
     Indication: DRUG TOXICITY PROPHYLAXIS
     Route: 003
     Dates: start: 20170704, end: 20170829

REACTIONS (2)
  - Hyperthyroidism [Recovering/Resolving]
  - Pyrexia [None]

NARRATIVE: CASE EVENT DATE: 20170719
